FAERS Safety Report 8453502-5 (Version None)
Quarter: 2012Q2

REPORT INFORMATION
  Report Type: 
  Country: None (occurrence: None)
  Receive Date: 20120620
  Receipt Date: 20120521
  Transmission Date: 20120825
  Serious: No
  Sender: FDA-Public Use
  Company Number: US-VERTEX PHARMACEUTICALS INC.-AE-2012-007455

PATIENT
  Sex: Female
  Weight: 66.284 kg

DRUGS (4)
  1. TRAZODONE HCL [Concomitant]
     Route: 048
  2. PEGASYS [Concomitant]
     Indication: HEPATITIS C
     Route: 058
  3. RIBASPHERE [Concomitant]
     Indication: HEPATITIS C
     Route: 048
  4. INCIVEK [Suspect]
     Indication: HEPATITIS C
     Route: 048

REACTIONS (2)
  - PYREXIA [None]
  - NAUSEA [None]
